FAERS Safety Report 5654043-0 (Version None)
Quarter: 2008Q1

REPORT INFORMATION
  Report Type: 
  Country: None (occurrence: None)
  Receive Date: 20080131
  Receipt Date: 20071001
  Transmission Date: 20080703
  Serious: No
  Sender: FDA-Public Use
  Company Number: US200710000504

PATIENT
  Age: 49 Year
  Sex: Male

DRUGS (1)
  1. BYETTA [Suspect]
     Dosage: 7 UG, 2/D, SUBCUTANEOUS
     Route: 058
     Dates: start: 20071001, end: 20071001

REACTIONS (1)
  - DRUG PRESCRIBING ERROR [None]
